FAERS Safety Report 6416597-6 (Version None)
Quarter: 2009Q4

REPORT INFORMATION
  Report Type: 
  Country: None (occurrence: None)
  Receive Date: 20091027
  Receipt Date: 20091015
  Transmission Date: 20100525
  Serious: Yes (Hospitalization, Other)
  Sender: FDA-Public Use
  Company Number: US-ELI_LILLY_AND_COMPANY-US200910006044

PATIENT
  Sex: Female

DRUGS (7)
  1. FORTEO [Suspect]
     Indication: OSTEOPOROSIS
     Dosage: 20 UG, DAILY (1/D)
     Dates: start: 20090201
  2. FORTEO [Suspect]
     Dosage: 20 UG, QOD
     Dates: start: 20090101, end: 20090101
  3. NORVASC [Concomitant]
     Dosage: 5 MG, UNK
  4. PLAVIX [Concomitant]
     Dosage: 75 MG, UNK
  5. CRESTOR [Concomitant]
     Dosage: 10 MG, UNK
  6. OMEPRAZOLE [Concomitant]
  7. TYLENOL W/ CODEINE NO. 3 [Concomitant]

REACTIONS (9)
  - ARTHROPATHY [None]
  - BACK DISORDER [None]
  - BLOOD PHOSPHORUS ABNORMAL [None]
  - BLOOD POTASSIUM ABNORMAL [None]
  - HYPOACUSIS [None]
  - INTERVERTEBRAL DISC PROTRUSION [None]
  - MALAISE [None]
  - MOBILITY DECREASED [None]
  - SARCOMA [None]
